FAERS Safety Report 22208000 (Version 3)
Quarter: 2023Q2

REPORT INFORMATION
  Report Type: Spontaneous
  Country: US (occurrence: US)
  Receive Date: 20230413
  Receipt Date: 20230621
  Transmission Date: 20230722
  Serious: No
  Sender: FDA-Public Use
  Company Number: US-PFIZER INC-202300141668

PATIENT
  Age: 11 Year
  Sex: Female
  Weight: 42.64 kg

DRUGS (4)
  1. GENOTROPIN [Suspect]
     Active Substance: SOMATROPIN
     Indication: Growth hormone deficiency
     Dosage: 1.6 MG, 1X/DAY, (1.6MG BY INJECTION EVERY DAY AT 7PM)
     Dates: start: 2016
  2. LEVOTHYROXINE [Concomitant]
     Active Substance: LEVOTHYROXINE
     Dosage: 75 UG, 1X/DAY, (1 IN THE MORNING; 75MCG)
  3. DESMOPRESSIN [Concomitant]
     Active Substance: DESMOPRESSIN
     Dosage: 0.1 MG, 2X/DAY, (0.1MG; 1 IN DAYTIME AND 1 IN EVENING)
  4. HYDROCORTISONE [Concomitant]
     Active Substance: HYDROCORTISONE
     Dosage: 5 MG, 2X/DAY, (5MG; 1 IN DAYTIME AND 1 IN EVENING)

REACTIONS (6)
  - Product dose omission issue [Unknown]
  - Poor quality device used [Unknown]
  - Expired device used [Unknown]
  - Expired product administered [Unknown]
  - Device information output issue [Unknown]
  - Device power source issue [Unknown]

NARRATIVE: CASE EVENT DATE: 20230301
